FAERS Safety Report 9517037 (Version 1)
Quarter: 2013Q3

REPORT INFORMATION
  Report Type: Spontaneous
  Country: US (occurrence: US)
  Receive Date: 20130911
  Receipt Date: 20130911
  Transmission Date: 20140515
  Serious: Yes (Other)
  Sender: FDA-Public Use
  Company Number: US-PFIZER INC-2013259435

PATIENT
  Age: 57 Year
  Sex: Female

DRUGS (2)
  1. CELEBREX [Suspect]
     Indication: PAIN
     Dosage: UNK
  2. CELEBREX [Suspect]
     Indication: ARTHRITIS

REACTIONS (2)
  - Gastric haemorrhage [Unknown]
  - Gastric ulcer [Unknown]
